FAERS Safety Report 25802571 (Version 1)
Quarter: 2025Q3

REPORT INFORMATION
  Report Type: Spontaneous
  Country: US (occurrence: None)
  Receive Date: 20250913
  Receipt Date: 20250913
  Transmission Date: 20251021
  Serious: Yes (Hospitalization)
  Sender: FDA-CTU
  Company Number: None

PATIENT
  Age: 87 Year
  Sex: Female
  Weight: 132 kg

DRUGS (3)
  1. CARBOPLATIN [Suspect]
     Active Substance: CARBOPLATIN
     Dates: end: 20200402
  2. FEMARA [Suspect]
     Active Substance: LETROZOLE
     Dates: end: 20250704
  3. TAXOL [Suspect]
     Active Substance: PACLITAXEL

REACTIONS (10)
  - Tachypnoea [None]
  - Hypoxia [None]
  - Haemoglobin decreased [None]
  - Blood potassium decreased [None]
  - Pneumonia [None]
  - Abdominal pain upper [None]
  - Gastritis [None]
  - Atelectasis [None]
  - Hypoventilation [None]
  - Cardiac failure congestive [None]

NARRATIVE: CASE EVENT DATE: 20250704
